FAERS Safety Report 8309463-2 (Version None)
Quarter: 2012Q2

REPORT INFORMATION
  Report Type: 
  Country: None (occurrence: None)
  Receive Date: 20120424
  Receipt Date: 20120424
  Transmission Date: 20120825
  Serious: Yes (Life-Threatening)
  Sender: FDA-Public Use
  Company Number: None

PATIENT
  Age: 59 Year
  Sex: Male
  Weight: 100.8 kg

DRUGS (1)
  1. IODIXANOL [Suspect]
     Indication: ANGIOGRAM
     Dosage: 30 ML ONCE IV
     Route: 042
     Dates: start: 20120321, end: 20120321

REACTIONS (7)
  - BLOOD PRESSURE SYSTOLIC INCREASED [None]
  - ANAPHYLACTIC REACTION [None]
  - ANGIOEDEMA [None]
  - NODAL RHYTHM [None]
  - ERYTHEMA MULTIFORME [None]
  - SINUS TACHYCARDIA [None]
  - BUNDLE BRANCH BLOCK LEFT [None]
